FAERS Safety Report 9853362 (Version 1)
Quarter: 2014Q1

REPORT INFORMATION
  Report Type: Spontaneous
  Country: MX (occurrence: MX)
  Receive Date: 20140129
  Receipt Date: 20140129
  Transmission Date: 20141002
  Serious: Yes (Other)
  Sender: FDA-Public Use
  Company Number: PHHY2014MX009869

PATIENT
  Age: 75 Year
  Sex: Female
  Weight: 61.5 kg

DRUGS (7)
  1. ACLASTA [Suspect]
     Indication: OSTEOPOROSIS
     Dosage: 5 MG/100ML, ANNUALLY
     Route: 042
     Dates: start: 201301
  2. TENORETIC [Concomitant]
     Indication: HYPERTENSION
     Dosage: 100 MG (1 TABLET(, DAILY
     Route: 048
  3. JANUMET [Concomitant]
     Indication: DIABETES MELLITUS
     Dosage: 2 DF (50/850MG), DAILY
     Route: 048
  4. ASPIRIN PROTECT [Concomitant]
     Dosage: 100 MG (TABLET), DAILY
     Route: 048
  5. CALTRATE D                         /00944201/ [Concomitant]
     Dosage: 1 DF, DAILY
     Route: 048
  6. AROMASIN [Concomitant]
     Indication: NEOPLASM
     Dosage: 1 DF, DAILY
     Route: 048
     Dates: start: 201208
  7. VITAMIN C [Concomitant]
     Dosage: 1 DF, DAILY
     Route: 048

REACTIONS (3)
  - Cerebrovascular disorder [Recovered/Resolved]
  - Blood uric acid increased [Unknown]
  - Dizziness [Recovered/Resolved]
